FAERS Safety Report 19789206 (Version 3)
Quarter: 2021Q4

REPORT INFORMATION
  Report Type: Spontaneous
  Country: IL (occurrence: IL)
  Receive Date: 20210905
  Receipt Date: 20211026
  Transmission Date: 20220303
  Serious: Yes (Other)
  Sender: FDA-Public Use
  Company Number: IL-PPDUS-2021ST000048

PATIENT
  Age: 85 Year
  Sex: Male

DRUGS (2)
  1. ELZONRIS [Suspect]
     Active Substance: TAGRAXOFUSP-ERZS
     Indication: Blastic plasmacytoid dendritic cell neoplasia
     Dosage: CYCLE 1
     Route: 042
     Dates: start: 20210822, end: 20210825
  2. ELZONRIS [Suspect]
     Active Substance: TAGRAXOFUSP-ERZS
     Dosage: SECOND CYCLE
     Route: 042
     Dates: start: 20211003, end: 20211004

REACTIONS (8)
  - Thrombocytopenia [Unknown]
  - Hepatotoxicity [Recovered/Resolved]
  - Rash erythematous [Unknown]
  - Confusional state [Recovered/Resolved]
  - Coagulopathy [Recovering/Resolving]
  - Blood lactate dehydrogenase increased [Recovering/Resolving]
  - Skin lesion [Recovered/Resolved]
  - Pyrexia [Recovering/Resolving]

NARRATIVE: CASE EVENT DATE: 20210826
